FAERS Safety Report 9850578 (Version 1)
Quarter: 2013Q4

REPORT INFORMATION
  Report Type: Spontaneous
  Country: US (occurrence: None)
  Receive Date: 20131226
  Receipt Date: 20131226
  Transmission Date: 20140711
  Serious: Yes (Hospitalization)
  Sender: FDA-Public Use
  Company Number: PHEH2012US019797

PATIENT
  Sex: Male

DRUGS (3)
  1. FORADIL [Suspect]
     Indication: EMPHYSEMA
     Route: 055
  2. PREDNISONE (PREDNISONE) [Concomitant]
  3. ALBUTEROL (SALBUTAMOL) [Concomitant]

REACTIONS (2)
  - Pneumonia [None]
  - Device malfunction [None]
